FAERS Safety Report 14267342 (Version 1)
Quarter: 2017Q4

REPORT INFORMATION
  Report Type: Spontaneous
  Country: US (occurrence: US)
  Receive Date: 20171211
  Receipt Date: 20171211
  Transmission Date: 20180321
  Serious: No
  Sender: FDA-Public Use
  Company Number: US-PFIZER INC-2017526714

PATIENT
  Age: 68 Year
  Sex: Female

DRUGS (2)
  1. DAYPRO [Suspect]
     Active Substance: OXAPROZIN
     Indication: RHEUMATOID ARTHRITIS
     Dosage: UNK
     Dates: start: 201606
  2. GABAPENTIN. [Suspect]
     Active Substance: GABAPENTIN
     Indication: RHEUMATOID ARTHRITIS
     Dosage: UNK
     Dates: start: 201606

REACTIONS (1)
  - Drug ineffective [Unknown]
